FAERS Safety Report 8180262-8 (Version None)
Quarter: 2012Q1

REPORT INFORMATION
  Report Type: 
  Country: None (occurrence: None)
  Receive Date: 20120302
  Receipt Date: 20110621
  Transmission Date: 20120608
  Serious: No
  Sender: FDA-Public Use
  Company Number: US-GLAXOSMITHKLINE-A0932230A

PATIENT
  Age: 84 Year
  Sex: Female

DRUGS (9)
  1. CLOBETASOL PROPIONATE [Suspect]
     Indication: DERMATITIS
     Dosage: 1APP TWICE PER DAY
     Route: 061
     Dates: start: 20110619
  2. CALCIUM [Concomitant]
  3. VITAMIN B-12 [Concomitant]
  4. TOPROL-XL [Concomitant]
  5. VITAMIN D [Concomitant]
  6. SIMVASTATIN [Concomitant]
  7. HYDROCHLOROTHIAZIDE [Concomitant]
  8. FISH OIL [Concomitant]
  9. ESOMEPRAZOLE SODIUM [Concomitant]

REACTIONS (2)
  - APPLICATION SITE PRURITUS [None]
  - PRURITUS [None]
